FAERS Safety Report 8266653-5 (Version None)
Quarter: 2012Q2

REPORT INFORMATION
  Report Type: 
  Country: None (occurrence: None)
  Receive Date: 20120407
  Receipt Date: 20120327
  Transmission Date: 20120825
  Serious: Yes (Death)
  Sender: FDA-Public Use
  Company Number: JP-ASTRAZENECA-2012SE21571

PATIENT
  Age: 71 Year
  Sex: Male
  Weight: 56 kg

DRUGS (2)
  1. CANDESARTAN CILEXETIL [Suspect]
     Route: 048
     Dates: start: 20120216
  2. DIFLUNISAL [Concomitant]
     Route: 048
     Dates: end: 20120215

REACTIONS (1)
  - SUDDEN DEATH [None]
